FAERS Safety Report 5603042-3 (Version None)
Quarter: 2008Q1

REPORT INFORMATION
  Report Type: 
  Country: None (occurrence: None)
  Receive Date: 20080125
  Receipt Date: 20080122
  Transmission Date: 20080703
  Serious: Yes (Life-Threatening)
  Sender: FDA-Public Use
  Company Number: BE-MERCK-0712BEL00007

PATIENT
  Age: 61 Year
  Sex: Male
  Weight: 59 kg

DRUGS (3)
  1. ZOCOR [Suspect]
     Indication: HYPERCHOLESTEROLAEMIA
     Route: 048
     Dates: start: 19991001
  2. PROPRANOLOL HYDROCHLORIDE [Concomitant]
     Indication: HYPERTENSION
     Route: 048
     Dates: start: 19991001
  3. ASPIRIN [Concomitant]
     Indication: VISUAL DISTURBANCE
     Route: 048
     Dates: start: 20010402

REACTIONS (1)
  - MYOCARDIAL ISCHAEMIA [None]
